FAERS Safety Report 14651170 (Version 1)
Quarter: 2018Q1

REPORT INFORMATION
  Report Type: Spontaneous
  Country: CA (occurrence: CA)
  Receive Date: 20180316
  Receipt Date: 20180316
  Transmission Date: 20180509
  Serious: Yes (Death)
  Sender: FDA-Public Use
  Company Number: CA-TEVA-2018-CA-868752

PATIENT
  Sex: Female

DRUGS (4)
  1. QUETIAPINE. [Suspect]
     Active Substance: QUETIAPINE
     Route: 065
  2. CLOMIPRAMINE [Suspect]
     Active Substance: CLOMIPRAMINE
     Route: 065
  3. CLOZAPINE. [Suspect]
     Active Substance: CLOZAPINE
     Route: 065
  4. FLUOXETINE [Suspect]
     Active Substance: FLUOXETINE HYDROCHLORIDE
     Route: 065

REACTIONS (11)
  - General physical health deterioration [Fatal]
  - Postmortem blood drug level abnormal [Fatal]
  - General physical condition abnormal [Fatal]
  - Resuscitation [Fatal]
  - Arrhythmia [Fatal]
  - Palpitations [Fatal]
  - Agitation [Fatal]
  - Cardio-respiratory arrest [Fatal]
  - Cold sweat [Fatal]
  - Toxicologic test abnormal [Fatal]
  - Electrocardiogram QT prolonged [Fatal]
